FAERS Safety Report 5684135-1 (Version None)
Quarter: 2008Q1

REPORT INFORMATION
  Report Type: 
  Country: None (occurrence: None)
  Receive Date: 20080327
  Receipt Date: 20080327
  Transmission Date: 20080703
  Serious: Yes (Other)
  Sender: FDA-Public Use
  Company Number: None

PATIENT
  Age: 50 Year
  Sex: Male
  Weight: 68.0396 kg

DRUGS (1)
  1. ADVAIR DISKUS 250/50 [Suspect]
     Indication: LUNG DISORDER
     Dosage: 250MG 2 PO
     Route: 048
     Dates: start: 20070315, end: 20080124

REACTIONS (5)
  - LYMPHADENOPATHY [None]
  - OSTEOPOROSIS [None]
  - PAIN IN EXTREMITY [None]
  - PAIN IN JAW [None]
  - TRISMUS [None]
